FAERS Safety Report 23164589 (Version 1)
Quarter: 2023Q4

REPORT INFORMATION
  Report Type: Spontaneous
  Country: US (occurrence: None)
  Receive Date: 20231108
  Receipt Date: 20231108
  Transmission Date: 20240109
  Serious: No
  Sender: FDA-Public Use
  Company Number: None

PATIENT
  Age: 33 Year
  Sex: Male
  Weight: 138 kg

DRUGS (2)
  1. ALTUVIIIO [Suspect]
     Active Substance: EFANESOCTOCOG ALFA
     Indication: Haemophilia
     Dosage: FREQUENCY : WEEKLY;?
     Route: 042
     Dates: start: 20231107, end: 20231107
  2. ALTUVIIIO [Concomitant]
     Active Substance: EFANESOCTOCOG ALFA
     Dates: start: 20231107, end: 20231107

REACTIONS (4)
  - Urticaria [None]
  - Rash [None]
  - Swollen tongue [None]
  - Throat tightness [None]
